FAERS Safety Report 5900149-8 (Version None)
Quarter: 2008Q3

REPORT INFORMATION
  Report Type: 
  Country: None (occurrence: None)
  Receive Date: 20080926
  Receipt Date: 20080922
  Transmission Date: 20090109
  Serious: Yes (Hospitalization)
  Sender: FDA-Public Use
  Company Number: DE-MERCK-0809DEU00105

PATIENT
  Age: 31 Year
  Sex: Female
  Weight: 60 kg

DRUGS (3)
  1. MAXALT [Suspect]
     Route: 048
     Dates: start: 20080922, end: 20080922
  2. MIGRAEFLUX [Suspect]
     Route: 048
     Dates: start: 20080922, end: 20080922
  3. TAVOR (LORAZEPAM) [Suspect]
     Route: 048
     Dates: start: 20080922, end: 20080922

REACTIONS (3)
  - INTENTIONAL OVERDOSE [None]
  - SOMNOLENCE [None]
  - SUICIDE ATTEMPT [None]
